FAERS Safety Report 20512199 (Version 1)
Quarter: 2022Q1

REPORT INFORMATION
  Report Type: Spontaneous
  Country: US (occurrence: US)
  Receive Date: 20220224
  Receipt Date: 20220224
  Transmission Date: 20220423
  Serious: No
  Sender: FDA-Public Use
  Company Number: US-MYLANLABS-2022M1011483

PATIENT
  Sex: Female

DRUGS (1)
  1. DENAVIR [Suspect]
     Active Substance: PENCICLOVIR
     Indication: Oral herpes
     Dosage: 1 PERCENT

REACTIONS (2)
  - Incorrect dose administered [Unknown]
  - Expired product administered [Unknown]
